FAERS Safety Report 6357713-4 (Version None)
Quarter: 2009Q3

REPORT INFORMATION
  Report Type: 
  Country: None (occurrence: None)
  Receive Date: 20090911
  Receipt Date: 20090903
  Transmission Date: 20100115
  Serious: Yes (Hospitalization)
  Sender: FDA-Public Use
  Company Number: AE-2008-063

PATIENT
  Age: 65 Year
  Sex: Female
  Weight: 50 kg

DRUGS (9)
  1. HYDROCHLOROTHIAZIDE [Suspect]
     Indication: HYPERTENSION
     Dosage: 12.5 MG,QD,ORAL
     Route: 048
  2. RAMIPRIL [Suspect]
     Indication: HYPERTENSION
     Dosage: 5 MG, QD,ORAL
     Route: 048
  3. RISEDRONATE SODIUM [Concomitant]
  4. HEPARIN-FRACTION,NA.SALT [Concomitant]
  5. AZATHIOPRINE [Concomitant]
  6. FENTANYL-100 [Concomitant]
  7. METAMIZOLE (METAMIZOLE) [Concomitant]
  8. NULYTELY [Concomitant]
  9. TIZANIDINE HCL [Concomitant]

REACTIONS (2)
  - HYPOTENSION [None]
  - SYNCOPE [None]
